FAERS Safety Report 4526428-7 (Version None)
Quarter: 2004Q4

REPORT INFORMATION
  Report Type: 
  Country: None (occurrence: None)
  Receive Date: 20041214
  Receipt Date: 20041207
  Transmission Date: 20050328
  Serious: Yes (Other)
  Sender: FDA-Public Use
  Company Number: BR-ROCHE-388610

PATIENT
  Age: 53 Year
  Sex: Male
  Weight: 70 kg

DRUGS (3)
  1. VALIUM [Suspect]
     Indication: ANXIETY
     Route: 048
     Dates: start: 20040815
  2. CARBAMAZEPINA [Concomitant]
     Indication: DRUG USE FOR UNKNOWN INDICATION
     Route: 048
  3. ANCORON [Concomitant]
     Indication: DRUG USE FOR UNKNOWN INDICATION
     Route: 048

REACTIONS (5)
  - ASTHENIA [None]
  - DEPRESSION [None]
  - DIZZINESS [None]
  - SUICIDE ATTEMPT [None]
  - TREMOR [None]
